FAERS Safety Report 22366050 (Version 3)
Quarter: 2025Q3

REPORT INFORMATION
  Report Type: Spontaneous
  Country: EU (occurrence: EU)
  Receive Date: 20230525
  Receipt Date: 20250803
  Transmission Date: 20251021
  Serious: Yes (Hospitalization, Other)
  Sender: ALEXION PHARMACEUTICALS
  Company Number: None

PATIENT
  Age: 63 Year
  Sex: Male
  Weight: 83 kg

DRUGS (1)
  1. DURVALUMAB [Suspect]
     Active Substance: DURVALUMAB
     Indication: Lung adenocarcinoma
     Dates: start: 20230102, end: 20230213

REACTIONS (3)
  - Atrioventricular block [Recovered/Resolved with Sequelae]
  - Hypertransaminasaemia [Recovered/Resolved]
  - Immune-mediated myocarditis [Recovered/Resolved with Sequelae]

NARRATIVE: CASE EVENT DATE: 20230210
